FAERS Safety Report 9432234 (Version 1)
Quarter: 2013Q3

REPORT INFORMATION
  Report Type: Spontaneous
  Country: US (occurrence: None)
  Receive Date: 20130730
  Receipt Date: 20130730
  Transmission Date: 20140515
  Serious: Yes (Death, Other)
  Sender: FDA-Public Use
  Company Number: None

PATIENT
  Age: 45 Year
  Sex: Male
  Weight: 74.84 kg

DRUGS (2)
  1. PREDNISONE [Suspect]
     Indication: TRANSPLANT REJECTION
     Dosage: 1 DAYILY  PO
     Route: 048
     Dates: start: 20100610, end: 20130409
  2. MYFORTIC [Suspect]
     Indication: RENAL AND PANCREAS TRANSPLANT
     Dosage: 2  TWICE DAYILY  PO
     Route: 048
     Dates: start: 20100914, end: 20130409

REACTIONS (2)
  - Hallucinations, mixed [None]
  - Abnormal behaviour [None]
